FAERS Safety Report 19790358 (Version 2)
Quarter: 2022Q1

REPORT INFORMATION
  Report Type: Report from Study
  Country: CA (occurrence: CA)
  Receive Date: 20210906
  Receipt Date: 20220113
  Transmission Date: 20220424
  Serious: Yes (Life-Threatening, Hospitalization)
  Sender: FDA-Public Use
  Company Number: CA-JNJFOC-20210861077

PATIENT
  Age: 48 Year
  Sex: Male

DRUGS (1)
  1. SIMPONI [Suspect]
     Active Substance: GOLIMUMAB
     Indication: Ankylosing spondylitis
     Dosage: STRENGTH = 50 MG, ALSO REPORTED (26-MAR-2021)
     Route: 058
     Dates: start: 20210326

REACTIONS (3)
  - Pulmonary embolism [Unknown]
  - Infection [Unknown]
  - Henoch-Schonlein purpura [Unknown]

NARRATIVE: CASE EVENT DATE: 20210820
